FAERS Safety Report 9105814 (Version 1)
Quarter: 2013Q1

REPORT INFORMATION
  Report Type: Report from Study
  Country: IE (occurrence: IE)
  Receive Date: 20130220
  Receipt Date: 20130220
  Transmission Date: 20140127
  Serious: Yes (Hospitalization)
  Sender: FDA-Public Use
  Company Number: IE-GLAXOSMITHKLINE-B0868533A

PATIENT
  Age: 69 Year
  Sex: Male
  Weight: 94.1 kg

DRUGS (5)
  1. OFATUMUMAB [Suspect]
     Indication: CHRONIC LYMPHOCYTIC LEUKAEMIA
     Dosage: 750MG PER DAY
     Route: 042
     Dates: start: 20121109, end: 20121128
  2. PARACETAMOL [Concomitant]
     Indication: PREMEDICATION
     Dosage: 1G PER DAY
     Dates: start: 20121116
  3. ALLOPURINOL [Concomitant]
     Indication: PROPHYLAXIS
     Dosage: 300MG PER DAY
     Route: 048
     Dates: start: 20121108
  4. HYDROCORTISONE [Concomitant]
     Indication: PREMEDICATION
     Dosage: 400MG PER DAY
     Route: 042
     Dates: start: 20121109
  5. PIRITON [Concomitant]
     Indication: PREMEDICATION
     Dosage: 10MG PER DAY
     Route: 048
     Dates: start: 20121109

REACTIONS (1)
  - Acute myocardial infarction [Recovered/Resolved]
